FAERS Safety Report 14061120 (Version 4)
Quarter: 2017Q4

REPORT INFORMATION
  Report Type: Spontaneous
  Country: GB (occurrence: GB)
  Receive Date: 20171008
  Receipt Date: 20171115
  Transmission Date: 20180321
  Serious: No
  Sender: FDA-Public Use
  Company Number: GB-BIOGEN-2017BV000327

PATIENT
  Age: 17 Year
  Sex: Male

DRUGS (4)
  1. ALPROLIX [Suspect]
     Active Substance: EFTRENONACOG ALFA
     Indication: FACTOR IX DEFICIENCY
     Route: 065
     Dates: start: 201702
  2. ALPROLIX [Suspect]
     Active Substance: EFTRENONACOG ALFA
     Dates: start: 20170923
  3. ALPROLIX [Suspect]
     Active Substance: EFTRENONACOG ALFA
     Dates: start: 20170927
  4. ALPROLIX [Suspect]
     Active Substance: EFTRENONACOG ALFA
     Dates: start: 20170921

REACTIONS (10)
  - Injection site rash [Recovering/Resolving]
  - Injection site pain [Recovering/Resolving]
  - Feeling hot [Recovered/Resolved]
  - Nausea [Recovered/Resolved]
  - Haemorrhage [Unknown]
  - Dizziness [Recovered/Resolved]
  - Rash generalised [Recovering/Resolving]
  - Injection site erythema [Recovered/Resolved]
  - Cold sweat [Recovering/Resolving]
  - Headache [Recovered/Resolved]

NARRATIVE: CASE EVENT DATE: 20170921
